FAERS Safety Report 5245859-3 (Version None)
Quarter: 2007Q1

REPORT INFORMATION
  Report Type: 
  Country: None (occurrence: None)
  Receive Date: 20070223
  Receipt Date: 20070214
  Transmission Date: 20070707
  Serious: Yes (Hospitalization)
  Sender: FDA-Public Use
  Company Number: AU-ABBOTT-07P-008-0359211-00

PATIENT
  Age: 73 Year
  Sex: Female

DRUGS (1)
  1. EPILIM TABLETS [Suspect]
     Indication: DRUG USE FOR UNKNOWN INDICATION
     Route: 048

REACTIONS (5)
  - DIARRHOEA [None]
  - DYSPNOEA [None]
  - LOSS OF CONSCIOUSNESS [None]
  - OVERDOSE [None]
  - SPEECH DISORDER [None]
